FAERS Safety Report 13312212 (Version 1)
Quarter: 2017Q1

REPORT INFORMATION
  Report Type: Spontaneous
  Country: US (occurrence: US)
  Receive Date: 20170309
  Receipt Date: 20170309
  Transmission Date: 20170428
  Serious: Yes (Life-Threatening, Other)
  Sender: FDA-Public Use
  Company Number: None

PATIENT
  Age: 70 Year
  Sex: Male
  Weight: 99.8 kg

DRUGS (2)
  1. ATORVASTATIN [Suspect]
     Active Substance: ATORVASTATIN
     Route: 048
     Dates: start: 20160513, end: 20170105
  2. SIMVASTATIN. [Suspect]
     Active Substance: SIMVASTATIN
     Route: 048
     Dates: start: 20151110, end: 20160513

REACTIONS (5)
  - Diastolic dysfunction [None]
  - Myalgia [None]
  - Pulmonary eosinophilia [None]
  - Blood immunoglobulin E increased [None]
  - Arthralgia [None]

NARRATIVE: CASE EVENT DATE: 20160210
